FAERS Safety Report 23600253 (Version 1)
Quarter: 2024Q1

REPORT INFORMATION
  Report Type: Spontaneous
  Country: US (occurrence: US)
  Receive Date: 20240306
  Receipt Date: 20240306
  Transmission Date: 20240410
  Serious: Yes (Hospitalization)
  Sender: FDA-Public Use
  Company Number: US-Stason Pharmaceuticals, Inc.-2154060

PATIENT
  Age: 10 Year
  Sex: Male

DRUGS (3)
  1. MERCAPTOPURINE SODIUM [Suspect]
     Active Substance: MERCAPTOPURINE SODIUM
     Route: 048
  2. METHOTREXATE [Concomitant]
     Active Substance: METHOTREXATE
     Route: 048
  3. VINCRISTINE SULFATE [Concomitant]
     Active Substance: VINCRISTINE SULFATE
     Route: 042

REACTIONS (2)
  - Palmar-plantar erythrodysaesthesia syndrome [Recovered/Resolved]
  - Mucosal inflammation [Recovered/Resolved]
